FAERS Safety Report 6161382-6 (Version None)
Quarter: 2009Q2

REPORT INFORMATION
  Report Type: 
  Country: None (occurrence: None)
  Receive Date: 20090421
  Receipt Date: 20090227
  Transmission Date: 20091009
  Serious: No
  Sender: FDA-Public Use
  Company Number: US-BAYER-200914866NA

PATIENT
  Age: 33 Year
  Sex: Female
  Weight: 66 kg

DRUGS (2)
  1. MIRENA [Suspect]
     Indication: CONTRACEPTION
     Dosage: CONTINUOUS
     Route: 015
     Dates: start: 20090217, end: 20090226
  2. VITAMIN TAB [Concomitant]

REACTIONS (5)
  - ABDOMINAL PAIN LOWER [None]
  - ANXIETY [None]
  - FATIGUE [None]
  - GENITAL HAEMORRHAGE [None]
  - NAUSEA [None]
